FAERS Safety Report 8590471 (Version 2)
Quarter: 2012Q4

REPORT INFORMATION
  Report Type: 
  Country: US (occurrence: US)
  Receive Date: 20120601
  Receipt Date: 20121108
  Transmission Date: 20130627
  Serious: Yes (Hospitalization, Disabling, Other)
  Sender: FDA-Public Use
  Company Number: US-PFIZER INC-2012129007

PATIENT
  Sex: Male

DRUGS (2)
  1. CHANTIX [Suspect]
     Indication: SMOKING CESSATION THERAPY
     Dosage: starter pack and continuing pack
     Dates: start: 20080915, end: 20080930
  2. CHANTIX [Suspect]
     Dosage: starter pack and continuing pack
     Dates: start: 20090530

REACTIONS (17)
  - Intentional overdose [Unknown]
  - Suicide attempt [Unknown]
  - Convulsion [Unknown]
  - Concussion [Unknown]
  - Suicide attempt [Unknown]
  - Loss of consciousness [Unknown]
  - Depression [Not Recovered/Not Resolved]
  - Aggression [Not Recovered/Not Resolved]
  - Anxiety [Not Recovered/Not Resolved]
  - Fall [Unknown]
  - Cognitive disorder [Not Recovered/Not Resolved]
  - Dizziness [Not Recovered/Not Resolved]
  - Headache [Not Recovered/Not Resolved]
  - Dysgraphia [Not Recovered/Not Resolved]
  - Speech disorder [Not Recovered/Not Resolved]
  - Reading disorder [Not Recovered/Not Resolved]
  - Pain [Not Recovered/Not Resolved]
